FAERS Safety Report 17930994 (Version 1)
Quarter: 2020Q2

REPORT INFORMATION
  Report Type: Spontaneous
  Country: GB (occurrence: GB)
  Receive Date: 20200623
  Receipt Date: 20200623
  Transmission Date: 20200714
  Serious: Yes (Other)
  Sender: FDA-Public Use
  Company Number: ALC2020GB004649

PATIENT

DRUGS (2)
  1. BONJELA [Suspect]
     Active Substance: CETALKONIUM CHLORIDE\CHOLINE SALICYLATE\MENTHOL
     Indication: TOOTHACHE
     Dosage: ONCE APPLIED ON DENTURES
     Route: 061
     Dates: start: 20200602, end: 20200603
  2. HYPROMELLOSE [Suspect]
     Active Substance: HYPROMELLOSES
     Indication: PRODUCT USED FOR UNKNOWN INDICATION
     Dosage: UNK
     Route: 061
     Dates: start: 20200602, end: 20200603

REACTIONS (2)
  - Lip swelling [Not Recovered/Not Resolved]
  - Swelling face [Not Recovered/Not Resolved]

NARRATIVE: CASE EVENT DATE: 20200603
